FAERS Safety Report 17932516 (Version 1)
Quarter: 2020Q2

REPORT INFORMATION
  Report Type: Spontaneous
  Country: PK (occurrence: PK)
  Receive Date: 20200623
  Receipt Date: 20200623
  Transmission Date: 20200714
  Serious: Yes (Other)
  Sender: FDA-Public Use
  Company Number: PK-ROCHE-2627710

PATIENT

DRUGS (1)
  1. ACTEMRA [Suspect]
     Active Substance: TOCILIZUMAB
     Indication: COVID-19
     Route: 065

REACTIONS (3)
  - Product use in unapproved indication [Unknown]
  - Disease progression [Unknown]
  - Off label use [Unknown]
